FAERS Safety Report 7220458-2 (Version None)
Quarter: 2011Q1

REPORT INFORMATION
  Report Type: 
  Country: None (occurrence: None)
  Receive Date: 20110111
  Receipt Date: 20110105
  Transmission Date: 20110831
  Serious: Yes (Death, Hospitalization, Other)
  Sender: FDA-Public Use
  Company Number: PHHY2009MX48697

PATIENT
  Sex: Female

DRUGS (8)
  1. CO-DIOVAN [Suspect]
     Dosage: 80 MG VALS AND 12.5 MG HYDR
     Route: 048
     Dates: start: 20091101
  2. DIOVAN [Suspect]
     Dosage: 1 TABLET (80/12.5 MG) PER DAY
  3. DIOVAN [Suspect]
     Dosage: 320/25 MG PER DAY
  4. GLYBURIDE AND METFORMIN HCL [Concomitant]
     Indication: DIABETES MELLITUS
     Dosage: 2 DF, UNK
     Route: 065
  5. GALVUS MET [Suspect]
     Dosage: 500 MG METF AND 50 MG VILD
     Route: 048
     Dates: start: 20100101
  6. EXFORGE [Suspect]
     Dosage: 1 DF, UNK
     Route: 048
     Dates: start: 20101101
  7. DIOVAN [Suspect]
     Indication: HYPERTENSION
     Dosage: 2 TABLETS (160 MG) DAILY
     Route: 048
     Dates: start: 20070815, end: 20091103
  8. METOPROLOL TARTRATE [Concomitant]
     Route: 065

REACTIONS (8)
  - RENAL FAILURE [None]
  - RENAL PAIN [None]
  - OEDEMA PERIPHERAL [None]
  - BLOOD GLUCOSE INCREASED [None]
  - DYSPNOEA [None]
  - HYPERTENSION [None]
  - METABOLIC DISORDER [None]
  - FLUID RETENTION [None]
